FAERS Safety Report 4732763-X (Version None)
Quarter: 2005Q3

REPORT INFORMATION
  Report Type: 
  Country: None (occurrence: None)
  Receive Date: 20050801
  Receipt Date: 20050721
  Transmission Date: 20060218
  Serious: Yes (Other)
  Sender: FDA-Public Use
  Company Number: 2005-06-1329

PATIENT
  Age: 73 Year
  Sex: Female

DRUGS (1)
  1. CELESTAMINE TAB [Suspect]
     Indication: PRURITUS
     Dosage: 2 TAB ORAL
     Route: 048
     Dates: start: 20050301

REACTIONS (2)
  - ADRENAL SUPPRESSION [None]
  - EMPTY SELLA SYNDROME [None]
